FAERS Safety Report 7830514-3 (Version None)
Quarter: 2011Q4

REPORT INFORMATION
  Report Type: 
  Country: None (occurrence: None)
  Receive Date: 20111019
  Receipt Date: 20111010
  Transmission Date: 20120403
  Serious: Yes (Other)
  Sender: FDA-Public Use
  Company Number: AUR-APL-2011-05443

PATIENT
  Age: 39 Year
  Sex: Female

DRUGS (2)
  1. CETIRIZINE [Suspect]
     Indication: NASOPHARYNGITIS
     Dosage: (10 MG, 1 D),
  2. CETIRIZINE [Suspect]
     Indication: CONJUNCTIVITIS
     Dosage: (10 MG, 1 D),

REACTIONS (5)
  - URTICARIA [None]
  - DEFICIENCY OF BILE SECRETION [None]
  - PRURITUS [None]
  - ARTHRALGIA [None]
  - HEPATITIS TOXIC [None]
